FAERS Safety Report 7168015-0 (Version None)
Quarter: 2010Q4

REPORT INFORMATION
  Report Type: 
  Country: None (occurrence: None)
  Receive Date: 20101202
  Receipt Date: 20101120
  Transmission Date: 20110411
  Serious: Yes (Hospitalization, Other)
  Sender: FDA-Public Use
  Company Number: 2010AP002501

PATIENT
  Age: 63 Year
  Sex: Female

DRUGS (4)
  1. SOTALOL HCL [Suspect]
     Dosage: 80 MG BID;
  2. OSELTAMIVIR [Suspect]
     Indication: INFLUENZA
     Dosage: 75 MG BID PO
     Route: 048
  3. AMPICILLIN [Concomitant]
  4. SULBACTAM [Concomitant]

REACTIONS (6)
  - DRUG INTERACTION [None]
  - INFLUENZA [None]
  - PYELONEPHRITIS [None]
  - TORSADE DE POINTES [None]
  - UNRESPONSIVE TO STIMULI [None]
  - VENTRICULAR FIBRILLATION [None]
